FAERS Safety Report 6190681-7 (Version None)
Quarter: 2009Q2

REPORT INFORMATION
  Report Type: 
  Country: None (occurrence: None)
  Receive Date: 20090514
  Receipt Date: 20090504
  Transmission Date: 20091009
  Serious: Yes (Hospitalization)
  Sender: FDA-Public Use
  Company Number: FR-WYE-H09312709

PATIENT
  Age: 87 Year
  Sex: Female

DRUGS (10)
  1. CORDARONE [Suspect]
     Route: 048
  2. CORVASAL [Interacting]
     Route: 048
  3. FLUDEX [Interacting]
     Route: 048
  4. LEVOTHYROX [Concomitant]
     Dosage: UNSPECIFIED
     Route: 048
  5. CARDIOCALM [Concomitant]
  6. ELISOR [Concomitant]
  7. DIFFU K [Concomitant]
  8. VASTAREL [Concomitant]
  9. MONO-TILDIEM [Interacting]
     Route: 048
  10. GINKGO BILOBA [Interacting]
     Route: 048

REACTIONS (2)
  - DRUG INTERACTION [None]
  - LOSS OF CONSCIOUSNESS [None]
